FAERS Safety Report 16689844 (Version 4)
Quarter: 2019Q4

REPORT INFORMATION
  Report Type: Spontaneous
  Country: JP (occurrence: JP)
  Receive Date: 20190809
  Receipt Date: 20191202
  Transmission Date: 20200122
  Serious: Yes (Other)
  Sender: FDA-Public Use
  Company Number: JP-GILEAD-2019-0422667

PATIENT
  Age: 21 Year
  Sex: Female
  Weight: 51 kg

DRUGS (10)
  1. TADALAFIL. [Suspect]
     Active Substance: TADALAFIL
     Dosage: UNK
     Route: 048
  2. TADALAFIL. [Suspect]
     Active Substance: TADALAFIL
     Dosage: UNK
     Route: 048
  3. PROGRAF [Concomitant]
     Active Substance: TACROLIMUS
     Indication: LIVER TRANSPLANT
     Dosage: 3.5 MG, 1D
     Route: 048
     Dates: start: 20171121
  4. MACITENTAN [Suspect]
     Active Substance: MACITENTAN
     Indication: PULMONARY HYPERTENSION
     Dosage: 10 MG, 1D
     Route: 048
     Dates: start: 20170227
  5. AMBRISENTAN [Suspect]
     Active Substance: AMBRISENTAN
     Indication: PULMONARY HYPERTENSION
     Dosage: UNK
     Route: 048
  6. TADALAFIL. [Suspect]
     Active Substance: TADALAFIL
     Indication: PULMONARY HYPERTENSION
     Dosage: 40 MG, 1D
     Route: 048
     Dates: start: 20130401
  7. URSO [Concomitant]
     Active Substance: URSODIOL
     Indication: LIVER TRANSPLANT
     Dosage: 600 MG, 1D
     Route: 048
     Dates: start: 20171220
  8. AMBRISENTAN [Suspect]
     Active Substance: AMBRISENTAN
     Dosage: 5 MG, QD
     Route: 048
     Dates: start: 20130821, end: 20170226
  9. PREDONINE [Concomitant]
     Active Substance: PREDNISOLONE
     Indication: LIVER TRANSPLANT
     Dosage: 10 MG, 1D
     Route: 048
     Dates: start: 20171220
  10. TAKEPRON [Concomitant]
     Active Substance: LANSOPRAZOLE
     Indication: LIVER TRANSPLANT
     Dosage: 30 MG, 1D
     Route: 048
     Dates: start: 20171023

REACTIONS (3)
  - Cardiac index decreased [Recovered/Resolved]
  - Headache [Recovering/Resolving]
  - Vascular resistance pulmonary increased [Recovered/Resolved]

NARRATIVE: CASE EVENT DATE: 201710
